FAERS Safety Report 13329397 (Version 1)
Quarter: 2017Q1

REPORT INFORMATION
  Report Type: Spontaneous
  Country: CA (occurrence: CA)
  Receive Date: 20170313
  Receipt Date: 20170313
  Transmission Date: 20170428
  Serious: Yes (Hospitalization)
  Sender: FDA-Public Use
  Company Number: CA-JNJFOC-20150823319

PATIENT
  Sex: Male

DRUGS (7)
  1. INVEGA SUSTENNA [Concomitant]
     Active Substance: PALIPERIDONE PALMITATE
     Route: 030
  2. LITHIUM. [Concomitant]
     Active Substance: LITHIUM
     Route: 065
  3. METFORMIN [Concomitant]
     Active Substance: METFORMIN HYDROCHLORIDE
     Route: 065
  4. LIPITOR [Concomitant]
     Active Substance: ATORVASTATIN CALCIUM
     Route: 065
  5. VERMOX [Suspect]
     Active Substance: MEBENDAZOLE
     Indication: MENTAL DISORDER
     Dosage: 1 PILL FOR 3 DAYS AND REPEAT AFTER 2 WEEKS AND THEN EVERY 6 MONTHS
     Route: 065
     Dates: start: 200908
  6. VERMOX [Suspect]
     Active Substance: MEBENDAZOLE
     Indication: SCHIZOAFFECTIVE DISORDER
     Dosage: 1 PILL FOR 3 DAYS AND REPEAT AFTER 2 WEEKS AND THEN EVERY 6 MONTHS
     Route: 065
     Dates: start: 200908
  7. GLICLAZIDE [Concomitant]
     Active Substance: GLICLAZIDE
     Route: 065

REACTIONS (3)
  - Therapeutic response unexpected [Unknown]
  - Aggression [Unknown]
  - Off label use [Unknown]
